FAERS Safety Report 4437686-1 (Version None)
Quarter: 2004Q3

REPORT INFORMATION
  Report Type: 
  Country: None (occurrence: None)
  Receive Date: 20040831
  Receipt Date: 20040323
  Transmission Date: 20050211
  Serious: No
  Sender: FDA-Public Use
  Company Number: 16186

PATIENT
  Age: 39 Year
  Sex: Female

DRUGS (2)
  1. ZOVIRAX [Suspect]
     Route: 061
     Dates: start: 20040310, end: 20040313
  2. ACYCLOVIR [Concomitant]
     Dosage: 400MG THREE TIMES PER DAY
     Route: 048

REACTIONS (1)
  - OEDEMA GENITAL [None]
